FAERS Safety Report 6996532-2 (Version None)
Quarter: 2010Q3

REPORT INFORMATION
  Report Type: 
  Country: None (occurrence: None)
  Receive Date: 20100918
  Receipt Date: 20090402
  Transmission Date: 20110219
  Serious: No
  Sender: FDA-Public Use
  Company Number: US-WYE-H08813509

PATIENT
  Age: 40 Year
  Sex: Male

DRUGS (2)
  1. EFFEXOR XR [Suspect]
     Route: 048
  2. ATIVAN [Concomitant]

REACTIONS (1)
  - MEDICATION RESIDUE [None]
